FAERS Safety Report 4509556-1 (Version None)
Quarter: 2004Q4

REPORT INFORMATION
  Report Type: 
  Country: None (occurrence: None)
  Receive Date: 20041119
  Receipt Date: 20041111
  Transmission Date: 20050328
  Serious: Yes (Other)
  Sender: FDA-Public Use
  Company Number: 200415268BCC

PATIENT
  Age: 89 Year
  Sex: Male
  Weight: 49.4421 kg

DRUGS (1)
  1. E.S. BAYER BACK + BODY PAIN [Suspect]
     Indication: ANALGESIC EFFECT
     Dosage: 32.5 / 500 MG, QD, ORAL
     Route: 048
     Dates: start: 20040101, end: 20041020

REACTIONS (1)
  - EYE HAEMORRHAGE [None]
